FAERS Safety Report 4542793-9 (Version None)
Quarter: 2004Q4

REPORT INFORMATION
  Report Type: 
  Country: None (occurrence: None)
  Receive Date: 20041231
  Receipt Date: 20041118
  Transmission Date: 20050328
  Serious: Yes (Other)
  Sender: FDA-Public Use
  Company Number: PHBS2004JP15662

PATIENT
  Age: 11 Year
  Sex: Female
  Weight: 33 kg

DRUGS (3)
  1. ZADITEN [Suspect]
     Indication: ECZEMA
     Dosage: 2 MG/DAY
     Route: 048
     Dates: start: 20041106, end: 20041110
  2. CEFZON [Suspect]
     Indication: WOUND INFECTION
     Dosage: 300 IU/ML, UNK
     Route: 048
     Dates: start: 20041106, end: 20041110
  3. BIOFERMIN R [Suspect]
     Indication: DIARRHOEA
     Dosage: 3 G, UNK
     Route: 048
     Dates: start: 20041106, end: 20041110

REACTIONS (7)
  - BLOOD ALKALINE PHOSPHATASE INCREASED [None]
  - BLOOD IMMUNOGLOBULIN E INCREASED [None]
  - BLOOD LACTATE DEHYDROGENASE INCREASED [None]
  - DRUG ERUPTION [None]
  - EOSINOPHIL COUNT INCREASED [None]
  - ERYTHEMA MULTIFORME [None]
  - PRURITUS [None]
